FAERS Safety Report 9538748 (Version 2)
Quarter: 2013Q3

REPORT INFORMATION
  Report Type: Spontaneous
  Country: US (occurrence: None)
  Receive Date: 20130917
  Receipt Date: 20130923
  Transmission Date: 20140515
  Serious: Yes (Hospitalization, Other)
  Sender: FDA-Public Use
  Company Number: ACO_38419_2013

PATIENT
  Age: 43 Year
  Sex: Female
  Weight: 68 kg

DRUGS (6)
  1. AMPYRA (DALFAMPRIDINE) TABLET, 10 MG [Suspect]
     Indication: GAIT DISTURBANCE
     Route: 048
     Dates: start: 20130816, end: 20130817
  2. VITAMIN D (ERGOCALCIFEROL) [Concomitant]
  3. COPAXONE (GLATIRAMER ACETATE) [Concomitant]
  4. BACLOFEN (BACLOFEN) [Concomitant]
  5. PROVIGIL (MODAFINIL) [Concomitant]
  6. LUMIGAN (BIMATOPROST) [Concomitant]

REACTIONS (10)
  - Aneurysm [None]
  - Loss of consciousness [None]
  - Abdominal pain [None]
  - Abdominal discomfort [None]
  - Tremor [None]
  - Fall [None]
  - Fatigue [None]
  - Insomnia [None]
  - Headache [None]
  - Convulsion [None]
